FAERS Safety Report 12194426 (Version 1)
Quarter: 2016Q1

REPORT INFORMATION
  Report Type: Other
  Country: FR (occurrence: FR)
  Receive Date: 20160321
  Receipt Date: 20160321
  Transmission Date: 20160526
  Serious: Yes (Hospitalization)
  Sender: FDA-Public Use
  Company Number: FR-LUPIN PHARMACEUTICALS INC.-2016-01015

PATIENT
  Age: 55 Year
  Sex: Female

DRUGS (9)
  1. THERALENE [Concomitant]
     Active Substance: TRIMEPRAZINE
     Indication: INTELLECTUAL DISABILITY
     Dosage: 20 DROPS AT NIGHT IF NEED
     Route: 030
  2. ESCITALOPRAM [Suspect]
     Active Substance: ESCITALOPRAM OXALATE
     Indication: INTELLECTUAL DISABILITY
     Dosage: 20 MG
     Route: 030
  3. THERALENE [Concomitant]
     Active Substance: TRIMEPRAZINE
     Indication: PSYCHOTIC DISORDER
  4. SIRESTA [Concomitant]
     Indication: PSYCHOTIC DISORDER
  5. RISPERDAL CONSTA [Interacting]
     Active Substance: RISPERIDONE
     Indication: INTELLECTUAL DISABILITY
     Route: 030
  6. RISPERDAL CONSTA [Interacting]
     Active Substance: RISPERIDONE
     Indication: PSYCHOTIC DISORDER
     Route: 030
  7. RISPERDAL CONSTA [Interacting]
     Active Substance: RISPERIDONE
     Indication: AGITATION
  8. SIRESTA [Concomitant]
     Indication: INTELLECTUAL DISABILITY
     Dosage: 10 MG
     Route: 030
  9. ESCITALOPRAM [Interacting]
     Active Substance: ESCITALOPRAM OXALATE
     Indication: PSYCHOTIC DISORDER

REACTIONS (2)
  - Drug interaction [Unknown]
  - Neuroleptic malignant syndrome [Unknown]
